FAERS Safety Report 14062579 (Version 1)
Quarter: 2017Q4

REPORT INFORMATION
  Report Type: Report from Study
  Country: None (occurrence: US)
  Receive Date: 20171009
  Receipt Date: 20171009
  Transmission Date: 20180321
  Serious: Yes (Other)
  Sender: FDA-Public Use
  Company Number: US-ABBVIE-17K-163-2119664-00

PATIENT
  Sex: Female

DRUGS (2)
  1. HUMIRA [Suspect]
     Active Substance: ADALIMUMAB
     Indication: CROHN^S DISEASE
     Route: 058
     Dates: start: 201702, end: 201707
  2. HUMIRA [Suspect]
     Active Substance: ADALIMUMAB
     Route: 058
     Dates: start: 201708

REACTIONS (12)
  - Upper limb fracture [Recovered/Resolved with Sequelae]
  - Rash pustular [Recovered/Resolved]
  - Joint dislocation [Not Recovered/Not Resolved]
  - Loss of consciousness [Unknown]
  - Limb injury [Recovered/Resolved]
  - Drug ineffective [Unknown]
  - Malaise [Recovered/Resolved]
  - Lymphadenopathy [Unknown]
  - Radius fracture [Recovered/Resolved with Sequelae]
  - Limb injury [Recovered/Resolved]
  - Balance disorder [Recovered/Resolved]
  - Pustular psoriasis [Not Recovered/Not Resolved]

NARRATIVE: CASE EVENT DATE: 2017
